FAERS Safety Report 20626640 (Version 5)
Quarter: 2023Q1

REPORT INFORMATION
  Report Type: Other
  Country: ES (occurrence: None)
  Receive Date: 20220323
  Receipt Date: 20230313
  Transmission Date: 20230418
  Serious: No
  Sender: FDA-Public Use
  Company Number: ES-ROCHE-3049778

PATIENT
  Age: 50 Year
  Sex: Female

DRUGS (4)
  1. OCRELIZUMAB [Suspect]
     Active Substance: OCRELIZUMAB
     Indication: Relapsing-remitting multiple sclerosis
     Dosage: SUBSEQUENT DOSES ON 30/MAR/2020, 16/SEP/2020, 04/MAR/2021, 03/SEP/2021, 31/MAR/2022, 30/SEP/2022.
     Route: 042
     Dates: start: 20200316
  2. BILASTINE [Concomitant]
     Active Substance: BILASTINE
     Route: 048
     Dates: start: 20150723
  3. CHOLECALCIFEROL [Concomitant]
     Active Substance: CHOLECALCIFEROL
     Dosage: 25000 IU
     Route: 048
     Dates: start: 20171116
  4. BIOTIN [Concomitant]
     Active Substance: BIOTIN
     Dates: start: 202106

REACTIONS (1)
  - COVID-19 [Recovered/Resolved]

NARRATIVE: CASE EVENT DATE: 20220228
